FAERS Safety Report 23857451 (Version 1)
Quarter: 2024Q2

REPORT INFORMATION
  Report Type: Spontaneous
  Country: US (occurrence: US)
  Receive Date: 20240515
  Receipt Date: 20240515
  Transmission Date: 20240716
  Serious: No
  Sender: FDA-Public Use
  Company Number: US-AMGEN-USASP2024095885

PATIENT
  Sex: Male

DRUGS (1)
  1. REPATHA [Suspect]
     Active Substance: EVOLOCUMAB
     Indication: Blood cholesterol abnormal
     Dosage: 140 MILLIGRAM, QWK (EVERY WEEK)
     Route: 058

REACTIONS (4)
  - Back pain [Unknown]
  - Nasopharyngitis [Unknown]
  - Influenza [Unknown]
  - Inappropriate schedule of product administration [Unknown]
